FAERS Safety Report 16967034 (Version 2)
Quarter: 2019Q4

REPORT INFORMATION
  Report Type: Spontaneous
  Country: US (occurrence: US)
  Receive Date: 20191028
  Receipt Date: 20191129
  Transmission Date: 20200122
  Serious: No
  Sender: FDA-Public Use
  Company Number: US-BAUSCH-BL-2019-024355

PATIENT
  Age: 75 Year
  Sex: Male
  Weight: 73.55 kg

DRUGS (3)
  1. LATANOPROST. [Concomitant]
     Active Substance: LATANOPROST
     Indication: PRODUCT USED FOR UNKNOWN INDICATION
  2. TIMOPTIC [Suspect]
     Active Substance: TIMOLOL MALEATE
     Indication: GLAUCOMA
     Dosage: USED COUPLE OF YEARS/ ABOUT TWO YEARS AGO
     Route: 047
  3. TIMOPTIC [Suspect]
     Active Substance: TIMOLOL MALEATE
     Dosage: IN THE LEFT EYE
     Route: 047
     Dates: start: 20190807, end: 20190810

REACTIONS (4)
  - Eyelid rash [Recovered/Resolved]
  - Product quality issue [Unknown]
  - Eye pain [Recovered/Resolved]
  - Eyelid margin crusting [Recovered/Resolved]

NARRATIVE: CASE EVENT DATE: 201908
